FAERS Safety Report 5151183-X (Version None)
Quarter: 2006Q4

REPORT INFORMATION
  Report Type: 
  Country: None (occurrence: None)
  Receive Date: 20061114
  Receipt Date: 20061114
  Transmission Date: 20070319
  Serious: Yes (Other)
  Sender: FDA-Public Use
  Company Number: None

PATIENT
  Sex: Female
  Weight: 97.0698 kg

DRUGS (2)
  1. VOLUMEN     AI: BARIUM SULFATE [Suspect]
     Indication: COMPUTERISED TOMOGRAM
     Dosage: PO
     Route: 048
  2. VOLUMEN     AI: BARIUM SULFATE [Suspect]
     Indication: SARCOMA
     Dosage: PO
     Route: 048

REACTIONS (2)
  - ANAPHYLACTIC REACTION [None]
  - PRESYNCOPE [None]
